FAERS Safety Report 25685250 (Version 1)
Quarter: 2025Q3

REPORT INFORMATION
  Report Type: Report from Study
  Country: US (occurrence: US)
  Receive Date: 20250815
  Receipt Date: 20250815
  Transmission Date: 20251021
  Serious: Yes (Hospitalization, Other)
  Sender: MALLINCKRODT
  Company Number: US-MALLINCKRODT-MNK202504798

PATIENT
  Age: 54 Year
  Sex: Female

DRUGS (2)
  1. CORTICOTROPIN [Suspect]
     Active Substance: CORTICOTROPIN
     Indication: Dry eye
     Dosage: 80 UNITS
     Dates: start: 20200226
  2. CORTICOTROPIN [Suspect]
     Active Substance: CORTICOTROPIN
     Route: 058

REACTIONS (9)
  - Vein disorder [Unknown]
  - Hospitalisation [Unknown]
  - Ankle operation [Unknown]
  - Eye operation [Unknown]
  - Anxiety [Unknown]
  - Umbilical hernia [Unknown]
  - Motion sickness [Unknown]
  - Arthralgia [Unknown]
  - Insomnia [Unknown]
